FAERS Safety Report 6297744-6 (Version None)
Quarter: 2009Q3

REPORT INFORMATION
  Report Type: 
  Country: None (occurrence: None)
  Receive Date: 20090805
  Receipt Date: 20090729
  Transmission Date: 20100115
  Serious: Yes (Other)
  Sender: FDA-Public Use
  Company Number: US-ROCHE-647542

PATIENT

DRUGS (1)
  1. KLONOPIN [Suspect]
     Indication: DRUG USE FOR UNKNOWN INDICATION
     Dosage: FORM: WAFER
     Route: 065

REACTIONS (5)
  - HALLUCINATION [None]
  - NAUSEA [None]
  - PALPITATIONS [None]
  - PARANOIA [None]
  - THINKING ABNORMAL [None]
